FAERS Safety Report 8801177 (Version 1)
Quarter: 2012Q4

REPORT INFORMATION
  Report Type: Report from Study
  Country: AU (occurrence: AU)
  Receive Date: 20120921
  Receipt Date: 20120921
  Transmission Date: 20130627
  Serious: Yes (Hospitalization)
  Sender: FDA-Public Use
  Company Number: AU-ABBOTT-12P-008-0979912-00

PATIENT
  Age: 26 Year
  Sex: Female

DRUGS (11)
  1. HUMIRA [Suspect]
     Indication: CROHN^S DISEASE
     Route: 058
     Dates: start: 20090119, end: 20090119
  2. HUMIRA [Suspect]
     Dosage: week 2
     Route: 058
  3. HUMIRA [Suspect]
     Route: 058
     Dates: end: 20100328
  4. HUMIRA [Suspect]
     Route: 058
     Dates: start: 20110929
  5. LOGYNON [Concomitant]
     Indication: CONTRACEPTION
     Dates: start: 2003
  6. NEXIUM [Concomitant]
     Indication: GASTROOESOPHAGEAL REFLUX DISEASE
     Dates: start: 200705
  7. NAPROXEN [Concomitant]
     Indication: DYSMENORRHOEA
     Dates: start: 2005
  8. BETAMETHASONE SODIUM PHOSPHATE [Concomitant]
     Indication: DRY SKIN
     Dosage: 0.5/5 MG
     Dates: start: 200907
  9. BETAMETHASONE SODIUM PHOSPHATE [Concomitant]
     Indication: PRURITUS
  10. CORTICOSTEROIDS [Concomitant]
     Indication: CROHN^S DISEASE
  11. MESALAZINE [Concomitant]
     Indication: CROHN^S DISEASE

REACTIONS (1)
  - Ileal perforation [Unknown]
